FAERS Safety Report 5963588-5 (Version None)
Quarter: 2008Q4

REPORT INFORMATION
  Report Type: 
  Country: None (occurrence: None)
  Receive Date: 20081124
  Receipt Date: 20081119
  Transmission Date: 20090506
  Serious: Yes (Hospitalization, Other)
  Sender: FDA-Public Use
  Company Number: JP-AVENTIS-200711884JP

PATIENT
  Age: 51 Year
  Sex: Male

DRUGS (9)
  1. DOCETAXEL [Suspect]
     Indication: NASOPHARYNGEAL CANCER STAGE IV
     Dates: start: 20060726, end: 20060726
  2. DOCETAXEL [Suspect]
     Indication: METASTASES TO LUNG
     Dates: start: 20060726, end: 20060726
  3. CISPLATIN [Suspect]
     Indication: NASOPHARYNGEAL CANCER STAGE IV
     Dates: start: 20060726, end: 20060726
  4. CISPLATIN [Suspect]
     Indication: METASTASES TO LUNG
     Dates: start: 20060726, end: 20060726
  5. RADIOTHERAPY [Concomitant]
     Indication: NASOPHARYNGEAL CANCER STAGE IV
     Dosage: DOSE: 30 GY/TOTAL
  6. RADIOTHERAPY [Concomitant]
     Dosage: DOSE: 30 GY/TOTAL
  7. RADIOTHERAPY [Concomitant]
     Indication: METASTASES TO LUNG
     Dosage: DOSE: 30 GY/TOTAL
  8. FLUOROURACIL [Concomitant]
     Indication: NASOPHARYNGEAL CANCER STAGE IV
     Dates: start: 20060726, end: 20060730
  9. FLUOROURACIL [Concomitant]
     Indication: METASTASES TO LUNG
     Dates: start: 20060726, end: 20060730

REACTIONS (3)
  - DEPRESSED LEVEL OF CONSCIOUSNESS [None]
  - HEADACHE [None]
  - INAPPROPRIATE ANTIDIURETIC HORMONE SECRETION [None]
